FAERS Safety Report 10198802 (Version 1)
Quarter: 2014Q2

REPORT INFORMATION
  Report Type: Spontaneous
  Country: US (occurrence: None)
  Receive Date: 20140523
  Receipt Date: 20140523
  Transmission Date: 20141212
  Serious: Yes (Hospitalization)
  Sender: FDA-Public Use
  Company Number: None

PATIENT
  Age: 50 Year
  Sex: Female
  Weight: 56.7 kg

DRUGS (20)
  1. NUCYNTA [Suspect]
     Indication: PAIN
     Route: 048
     Dates: start: 20130209, end: 20130330
  2. NUCYNTA [Suspect]
     Indication: HELICOBACTER INFECTION
     Route: 048
     Dates: start: 20130209, end: 20130330
  3. NUCYNTA [Suspect]
     Indication: SPINAL FRACTURE
     Route: 048
     Dates: start: 20130209, end: 20130330
  4. NUCYNTA [Suspect]
     Indication: JOINT DISLOCATION
     Route: 048
     Dates: start: 20130209, end: 20130330
  5. NORVASC [Concomitant]
  6. ZIAC [Concomitant]
  7. ZOLOFT [Concomitant]
  8. AMITRIPTYLINE [Concomitant]
  9. TEMAZEPAM [Concomitant]
  10. LIPITOR [Concomitant]
  11. HYDROCODONE [Concomitant]
  12. BACLOFEN [Concomitant]
  13. FENTANYL [Concomitant]
  14. VITAMIN C [Concomitant]
  15. MULTIVITAMIN [Concomitant]
  16. KRILL OIL [Concomitant]
  17. VITAMIN D [Concomitant]
  18. CO Q 10 [Suspect]
  19. B12 INJECTION [Concomitant]
  20. CALCIUM [Concomitant]

REACTIONS (11)
  - Thinking abnormal [None]
  - Paranoia [None]
  - Insomnia [None]
  - Psychotic disorder [None]
  - Slow speech [None]
  - Delirium [None]
  - Pain [None]
  - Overdose [None]
  - Transient ischaemic attack [None]
  - Feeling abnormal [None]
  - Memory impairment [None]
